FAERS Safety Report 4928032-5 (Version None)
Quarter: 2006Q1

REPORT INFORMATION
  Report Type: 
  Country: None (occurrence: None)
  Receive Date: 20060223
  Receipt Date: 20060214
  Transmission Date: 20060701
  Serious: Yes (Life-Threatening)
  Sender: FDA-Public Use
  Company Number: RS005746-CDN

PATIENT
  Age: 62 Year
  Sex: Female
  Weight: 62.5 kg

DRUGS (5)
  1. RABEPRAZOLE SODIUM [Suspect]
     Indication: GASTROOESOPHAGEAL REFLUX DISEASE
     Dosage: 20 MG, 2 IN 1 D, ORAL
     Route: 048
     Dates: start: 20010929, end: 20060122
  2. RABEPRAZOLE SODIUM [Suspect]
  3. CHOLESTYRAMINAL (COLESTYRAMINE) [Concomitant]
  4. VITAMIN B12 [Concomitant]
  5. BENADRYL [Concomitant]

REACTIONS (14)
  - ABDOMINAL PAIN UPPER [None]
  - CHEST PAIN [None]
  - CHILLS [None]
  - DYSPHONIA [None]
  - DYSPNOEA [None]
  - EYELID OEDEMA [None]
  - HEADACHE [None]
  - PALPITATIONS [None]
  - PHARMACEUTICAL PRODUCT COMPLAINT [None]
  - PHARYNGOLARYNGEAL PAIN [None]
  - SWELLING FACE [None]
  - TACHYCARDIA [None]
  - TINNITUS [None]
  - URTICARIA [None]
